FAERS Safety Report 13680234 (Version 1)
Quarter: 2017Q2

REPORT INFORMATION
  Report Type: Spontaneous
  Country: US (occurrence: US)
  Receive Date: 20170622
  Receipt Date: 20170622
  Transmission Date: 20170830
  Serious: Yes (Other)
  Sender: FDA-Public Use
  Company Number: US-STANDARD HOMEOPATHIC COMPANY-2022425

PATIENT
  Age: 20 Year
  Sex: Male

DRUGS (5)
  1. NERVE TONIC [Suspect]
     Active Substance: HOMEOPATHICS
     Indication: ANXIETY
     Route: 048
  2. NERVE TONIC [Suspect]
     Active Substance: HOMEOPATHICS
     Indication: DISTURBANCE IN ATTENTION
     Route: 048
  3. NERVE TONIC [Suspect]
     Active Substance: HOMEOPATHICS
     Indication: IRRITABILITY
     Route: 048
  4. NERVE TONIC [Suspect]
     Active Substance: HOMEOPATHICS
     Indication: STRESS
     Route: 048
  5. NERVE TONIC [Suspect]
     Active Substance: HOMEOPATHICS
     Indication: NERVOUSNESS
     Route: 048

REACTIONS (4)
  - Discomfort [None]
  - Haematuria [Not Recovered/Not Resolved]
  - Dysuria [Not Recovered/Not Resolved]
  - Abdominal pain lower [Not Recovered/Not Resolved]

NARRATIVE: CASE EVENT DATE: 20170606
